FAERS Safety Report 11469048 (Version 3)
Quarter: 2021Q3

REPORT INFORMATION
  Report Type: Spontaneous
  Country: IN (occurrence: IN)
  Receive Date: 20150908
  Receipt Date: 20210804
  Transmission Date: 20211014
  Serious: Yes (Other)
  Sender: FDA-Public Use
  Company Number: IN-PFIZER INC-2015293137

PATIENT
  Age: 72 Year
  Sex: Male
  Weight: 68 kg

DRUGS (15)
  1. FENTANYL. [Interacting]
     Active Substance: FENTANYL
     Dosage: 100 ?G, UNK
  2. VECURONIUM [Interacting]
     Active Substance: VECURONIUM BROMIDE
     Indication: ANAESTHESIA
     Dosage: 0.1 MG/KG, UNK
     Route: 042
  3. MORPHINE [Interacting]
     Active Substance: MORPHINE
     Indication: MAINTENANCE OF ANAESTHESIA
     Dosage: UNK
  4. ADRENALINE /00003901/ [Concomitant]
     Active Substance: EPINEPHRINE
     Dosage: ESCALATED TO MAXIMUM (20 MCG/MIN)
  5. NORADRENALINE /00127501/ [Concomitant]
     Active Substance: NOREPINEPHRINE
     Dosage: ESCALATED TO MAXIMUM (20 MCG/MIN)
  6. METOPROLOL. [Interacting]
     Active Substance: METOPROLOL
     Indication: HYPERTENSION
     Dosage: 50 MG, UNK
  7. GLYCOPYRROLATE /00196202/ [Interacting]
     Active Substance: GLYCOPYRROLATE
     Indication: PREMEDICATION
     Dosage: 0.2 MG, UNK
  8. ONDANSETRON [Interacting]
     Active Substance: ONDANSETRON
     Indication: PREMEDICATION
     Dosage: 8 MG, UNK
  9. PROPOFOL. [Interacting]
     Active Substance: PROPOFOL
     Indication: ANAESTHESIA
     Dosage: 2 MG/KG, UNK
     Route: 042
  10. PROPOFOL. [Interacting]
     Active Substance: PROPOFOL
     Indication: MAINTENANCE OF ANAESTHESIA
     Dosage: UNK
  11. DOPAMINE [Concomitant]
     Active Substance: DOPAMINE HYDROCHLORIDE
     Dosage: ESCALATED TO MAXIMUM (20 MCG/MIN)
  12. AMLODIPINE BESILATE [Suspect]
     Active Substance: AMLODIPINE BESYLATE
     Indication: HYPERTENSION
     Dosage: 5 MG, UNK
  13. VECURONIUM [Interacting]
     Active Substance: VECURONIUM BROMIDE
     Indication: MAINTENANCE OF ANAESTHESIA
     Dosage: UNK
  14. ISOFLURANE. [Interacting]
     Active Substance: ISOFLURANE
     Indication: MAINTENANCE OF ANAESTHESIA
     Dosage: UNK
     Route: 042
  15. LACTATED RINGERS SOLUTION [Concomitant]
     Active Substance: CALCIUM CHLORIDE\POTASSIUM CHLORIDE\SODIUM CHLORIDE\SODIUM LACTATE
     Dosage: 250 ML IN TWO ALIQUOTS

REACTIONS (2)
  - Drug interaction [Recovered/Resolved]
  - Shock [Recovered/Resolved]
